FAERS Safety Report 4421634-4 (Version None)
Quarter: 2004Q3

REPORT INFORMATION
  Report Type: 
  Country: None (occurrence: None)
  Receive Date: 20040804
  Receipt Date: 20040720
  Transmission Date: 20050211
  Serious: No
  Sender: FDA-Public Use
  Company Number: 430051K04USA

PATIENT
  Age: 34 Year
  Sex: Female

DRUGS (1)
  1. NOVANTRONE [Suspect]
     Indication: MULTIPLE SCLEROSIS
     Dates: start: 20010101, end: 20030101

REACTIONS (3)
  - CARDIAC VENTRICULAR DISORDER [None]
  - CONDITION AGGRAVATED [None]
  - HEART RATE INCREASED [None]
